FAERS Safety Report 17513951 (Version 6)
Quarter: 2020Q2

REPORT INFORMATION
  Report Type: Report from Study
  Country: CL (occurrence: CL)
  Receive Date: 20200306
  Receipt Date: 20200622
  Transmission Date: 20200713
  Serious: Yes (Life-Threatening, Hospitalization, Other)
  Sender: FDA-Public Use
  Company Number: NVSC2019CL018877

PATIENT
  Age: 3 Year
  Sex: Female
  Weight: 11.2 kg

DRUGS (5)
  1. CANAKINUMAB. [Suspect]
     Active Substance: CANAKINUMAB
     Dosage: 4 MG/KG, EVERY 8 WEEKS
     Route: 058
     Dates: start: 20190823
  2. CANAKINUMAB. [Suspect]
     Active Substance: CANAKINUMAB
     Dosage: 4 MG/KG (50MG, EVERY 8 WEEKS)
     Route: 058
     Dates: start: 20200206
  3. CANAKINUMAB. [Suspect]
     Active Substance: CANAKINUMAB
     Dosage: 8 MG / KG / DOSE
     Route: 058
  4. CANAKINUMAB. [Suspect]
     Active Substance: CANAKINUMAB
     Dosage: 8 MG / KG / DOSE 8 WEEKS
     Route: 058
     Dates: start: 20190628, end: 20200519
  5. CANAKINUMAB. [Suspect]
     Active Substance: CANAKINUMAB
     Indication: MUCKLE-WELLS SYNDROME
     Dosage: 4 MG/KG
     Route: 058
     Dates: start: 20190628

REACTIONS (25)
  - Hyponatraemia [Recovered/Resolved]
  - Peritonitis [Unknown]
  - Gastrointestinal amyloidosis [Unknown]
  - Dehydration [Unknown]
  - White blood cell count increased [Recovered/Resolved]
  - Blood potassium abnormal [Unknown]
  - COVID-19 [Unknown]
  - Gastroenteritis viral [Recovered/Resolved]
  - Pyrexia [Unknown]
  - Haemoglobin abnormal [Unknown]
  - Pallor [Unknown]
  - Pyrexia [Recovered/Resolved]
  - Abdominal pain [Unknown]
  - Platelet count abnormal [Unknown]
  - Vomiting [Unknown]
  - Pyrexia [Unknown]
  - Intestinal perforation [Unknown]
  - Abdominal distension [Unknown]
  - Colitis [Unknown]
  - Dark circles under eyes [Unknown]
  - Disease progression [Unknown]
  - Nasal congestion [Recovered/Resolved]
  - Blood chloride abnormal [Unknown]
  - Muckle-Wells syndrome [Unknown]
  - Abdominal pain [Recovered/Resolved]

NARRATIVE: CASE EVENT DATE: 20190926
